FAERS Safety Report 8502855-8 (Version None)
Quarter: 2012Q3

REPORT INFORMATION
  Report Type: 
  Country: None (occurrence: None)
  Receive Date: 20120705
  Receipt Date: 20120705
  Transmission Date: 20120928
  Serious: No
  Sender: FDA-Public Use
  Company Number: None

PATIENT
  Age: 31 Year
  Sex: Male
  Weight: 92.1 kg

DRUGS (2)
  1. CITALOPRAM 10 MG TORRENT PHARMA [Suspect]
     Indication: DEPRESSION
     Dosage: 30 MG AM PO
     Route: 048
     Dates: start: 20120209, end: 20120304
  2. CHLORPROMAZINE [Suspect]
     Indication: PSYCHOTIC DISORDER
     Dosage: 100 MG HS PO
     Route: 048
     Dates: start: 20120210, end: 20120307

REACTIONS (1)
  - PRIAPISM [None]
